FAERS Safety Report 7158362-0 (Version None)
Quarter: 2010Q4

REPORT INFORMATION
  Report Type: 
  Country: None (occurrence: None)
  Receive Date: 20101214
  Receipt Date: 20100630
  Transmission Date: 20110411
  Serious: No
  Sender: FDA-Public Use
  Company Number: US-PFIZER INC-2010082619

PATIENT
  Age: 65 Year
  Sex: Male

DRUGS (1)
  1. ARTHROTEC [Suspect]
     Dosage: UNK

REACTIONS (3)
  - DYSPHONIA [None]
  - EUPHORIC MOOD [None]
  - FEELING ABNORMAL [None]
